FAERS Safety Report 16680260 (Version 3)
Quarter: 2019Q4

REPORT INFORMATION
  Report Type: Spontaneous
  Country: US (occurrence: US)
  Receive Date: 20190807
  Receipt Date: 20191111
  Transmission Date: 20200122
  Serious: Yes (Other)
  Sender: FDA-Public Use
  Company Number: PHEH2019US032104

PATIENT
  Sex: Male

DRUGS (1)
  1. AMOXICILLIN + CLAVULANATE POTASSIUM [Suspect]
     Active Substance: AMOXICILLIN\CLAVULANATE POTASSIUM
     Indication: ACUTE FLACCID MYELITIS
     Dosage: UNK
     Route: 065

REACTIONS (5)
  - Product design issue [Unknown]
  - Diplegia [Recovering/Resolving]
  - Lymphadenopathy [Recovering/Resolving]
  - Oropharyngeal pain [Recovering/Resolving]
  - Product use in unapproved indication [Unknown]
